FAERS Safety Report 5217837-1 (Version None)
Quarter: 2007Q1

REPORT INFORMATION
  Report Type: 
  Country: None (occurrence: None)
  Receive Date: 20061130
  Receipt Date: 20060912
  Transmission Date: 20070707
  Serious: Yes (Other)
  Sender: FDA-Public Use
  Company Number: US200607003558

PATIENT
  Age: 32 Year
  Sex: Male
  Weight: 81.2 kg

DRUGS (2)
  1. ZYPREXA [Suspect]
     Indication: ANXIETY
     Dosage: SEE IMAGE
     Dates: end: 20060201
  2. ZYPREXA [Suspect]
     Indication: ANXIETY
     Dosage: SEE IMAGE
     Dates: start: 20030101

REACTIONS (7)
  - BLOOD GLUCOSE INCREASED [None]
  - CATARACT [None]
  - CLONUS [None]
  - DRUG WITHDRAWAL SYNDROME [None]
  - HYPERREFLEXIA [None]
  - MUSCLE TWITCHING [None]
  - WEIGHT INCREASED [None]
